FAERS Safety Report 11394228 (Version 2)
Quarter: 2015Q3

REPORT INFORMATION
  Report Type: Spontaneous
  Country: US (occurrence: US)
  Receive Date: 20150819
  Receipt Date: 20150826
  Transmission Date: 20151125
  Serious: Yes (Death)
  Sender: FDA-Public Use
  Company Number: US-UNITED THERAPEUTICS-UNT-2015-010045

PATIENT
  Sex: Female
  Weight: 68.27 kg

DRUGS (1)
  1. TYVASO [Suspect]
     Active Substance: TREPROSTINIL
     Indication: PULMONARY HYPERTENSION
     Dosage: 18-54 ?G, QID
     Dates: start: 20111121

REACTIONS (2)
  - Pulmonary fibrosis [Fatal]
  - Pulmonary arterial hypertension [Fatal]
